FAERS Safety Report 7745920-5 (Version None)
Quarter: 2011Q3

REPORT INFORMATION
  Report Type: 
  Country: None (occurrence: None)
  Receive Date: 20110913
  Receipt Date: 20110912
  Transmission Date: 20111222
  Serious: Yes (Other)
  Sender: FDA-Public Use
  Company Number: US-PFIZER INC-2010115587

PATIENT
  Sex: Female
  Weight: 67.585 kg

DRUGS (9)
  1. NASONEX [Concomitant]
     Dosage: UNK
  2. EFFEXOR XR [Concomitant]
     Dosage: 150 MG, DAILY
  3. FLONASE [Concomitant]
     Dosage: UNK
  4. ALPRAZOLAM [Concomitant]
     Indication: ANXIETY
     Dosage: 0.25 MG, 2X/DAY, AS NEEDED
  5. SERTRALINE [Concomitant]
     Dosage: 50 MG, 1X/DAY
  6. ARTHROTEC [Suspect]
     Indication: TOOTHACHE
  7. ARTHROTEC [Suspect]
     Indication: GASTROINTESTINAL PAIN
     Dosage: UNK
     Route: 048
     Dates: end: 20100909
  8. MONTELUKAST SODIUM [Concomitant]
     Indication: ASTHMA
     Dosage: UNK
  9. ARTHROTEC [Suspect]
     Indication: DYSMENORRHOEA

REACTIONS (10)
  - ABDOMINAL DISCOMFORT [None]
  - FLUSHING [None]
  - PARAESTHESIA [None]
  - CONVULSION [None]
  - HYPERVENTILATION [None]
  - CHILLS [None]
  - PAIN [None]
  - DIARRHOEA [None]
  - PALLOR [None]
  - HYPERHIDROSIS [None]
